FAERS Safety Report 4400486-2 (Version None)
Quarter: 2004Q3

REPORT INFORMATION
  Report Type: 
  Country: None (occurrence: None)
  Receive Date: 20040714
  Receipt Date: 20040623
  Transmission Date: 20050211
  Serious: Yes (Hospitalization, Other)
  Sender: FDA-Public Use
  Company Number: USA040568117

PATIENT
  Age: 92 Year
  Sex: Female
  Weight: 72 kg

DRUGS (1)
  1. EVISTA [Suspect]
     Dates: start: 19980101

REACTIONS (5)
  - ASCITES [None]
  - LYMPHADENOPATHY [None]
  - METASTASES TO ABDOMINAL CAVITY [None]
  - OESTROGEN RECEPTOR ASSAY POSITIVE [None]
  - OVARIAN CANCER [None]
